FAERS Safety Report 10586178 (Version 3)
Quarter: 2014Q4

REPORT INFORMATION
  Report Type: Spontaneous
  Country: JP (occurrence: JP)
  Receive Date: 20141116
  Receipt Date: 20141216
  Transmission Date: 20150529
  Serious: Yes (Hospitalization, Other)
  Sender: FDA-Public Use
  Company Number: PHHY2014JP143713

PATIENT
  Age: 47 Year
  Sex: Female

DRUGS (4)
  1. METFORMIN [Suspect]
     Active Substance: METFORMIN HYDROCHLORIDE
     Indication: INTENTIONAL SELF-INJURY
     Dosage: 17500 MG, QD
     Route: 065
  2. EQUA [Suspect]
     Active Substance: VILDAGLIPTIN
     Indication: INTENTIONAL SELF-INJURY
     Dosage: 2500 MG, QD
     Route: 048
  3. EQUA [Suspect]
     Active Substance: VILDAGLIPTIN
     Indication: INTENTIONAL SELF-INJURY
  4. EQUA [Suspect]
     Active Substance: VILDAGLIPTIN
     Indication: TYPE 2 DIABETES MELLITUS
     Dosage: 250 MG, QD
     Route: 048

REACTIONS (6)
  - Vomiting [Recovered/Resolved]
  - Lactic acidosis [Unknown]
  - Intentional overdose [Recovered/Resolved]
  - Hypoglycaemia [Unknown]
  - Heart rate increased [Unknown]
  - Blood pressure abnormal [Unknown]

NARRATIVE: CASE EVENT DATE: 201407
